FAERS Safety Report 6789480-4 (Version None)
Quarter: 2010Q2

REPORT INFORMATION
  Report Type: 
  Country: None (occurrence: None)
  Receive Date: 20100624
  Receipt Date: 20100616
  Transmission Date: 20101027
  Serious: Yes (Hospitalization)
  Sender: FDA-Public Use
  Company Number: US-BIOGENIDEC-2010BI008216

PATIENT
  Age: 45 Year
  Sex: Female
  Weight: 79 kg

DRUGS (3)
  1. TYSABRI [Suspect]
     Indication: MULTIPLE SCLEROSIS
     Route: 042
     Dates: start: 20090323
  2. PEPCID [Concomitant]
     Indication: DYSPEPSIA
  3. PEPCID [Concomitant]
     Indication: HIATUS HERNIA

REACTIONS (3)
  - DYSPEPSIA [None]
  - GENERAL SYMPTOM [None]
  - HIATUS HERNIA [None]
